FAERS Safety Report 21208143 (Version 1)
Quarter: 2022Q3

REPORT INFORMATION
  Report Type: Spontaneous
  Country: US (occurrence: None)
  Receive Date: 20220811
  Receipt Date: 20220811
  Transmission Date: 20221027
  Serious: No
  Sender: FDA-Public Use
  Company Number: None

PATIENT
  Age: 79 Year
  Sex: Female

DRUGS (1)
  1. ENBREL [Suspect]
     Active Substance: ETANERCEPT
     Dosage: FREQUENCY: OTHER?
     Dates: start: 199901

REACTIONS (5)
  - Blood sodium decreased [None]
  - COVID-19 [None]
  - Therapy interrupted [None]
  - Rheumatoid factor increased [None]
  - Arthralgia [None]

NARRATIVE: CASE EVENT DATE: 20220811
